FAERS Safety Report 4449471-5 (Version None)
Quarter: 2004Q3

REPORT INFORMATION
  Report Type: 
  Country: None (occurrence: None)
  Receive Date: 20040910
  Receipt Date: 20040910
  Transmission Date: 20050211
  Serious: No
  Sender: FDA-Public Use
  Company Number: None

PATIENT
  Sex: Female

DRUGS (3)
  1. PREVACID [Suspect]
     Indication: GASTROINTESTINAL HAEMORRHAGE
     Dosage: 1 BID PO
     Route: 048
  2. PREVACID [Suspect]
     Indication: GASTROOESOPHAGEAL REFLUX DISEASE
     Dosage: 1 BID PO
     Route: 048
  3. PREVACID [Suspect]
     Indication: OESOPHAGITIS
     Dosage: 1 BID PO
     Route: 048

REACTIONS (6)
  - BACK PAIN [None]
  - CHEST PAIN [None]
  - DECREASED APPETITE [None]
  - EPISTAXIS [None]
  - RECTAL HAEMORRHAGE [None]
  - WEIGHT DECREASED [None]
